FAERS Safety Report 18455876 (Version 4)
Quarter: 2022Q1

REPORT INFORMATION
  Report Type: Other
  Country: AR (occurrence: AR)
  Receive Date: 20201103
  Receipt Date: 20220214
  Transmission Date: 20220423
  Serious: Yes (Hospitalization, Other)
  Sender: FDA-Public Use
  Company Number: AR-002147023-NVSC2020AR287792

PATIENT
  Age: 57 Year
  Sex: Female

DRUGS (5)
  1. XOLAIR [Suspect]
     Active Substance: OMALIZUMAB
     Indication: Asthma
     Route: 058
     Dates: start: 20161201
  2. XOLAIR [Suspect]
     Active Substance: OMALIZUMAB
     Indication: Product used for unknown indication
     Route: 065
     Dates: start: 201709
  3. XOLAIR [Suspect]
     Active Substance: OMALIZUMAB
     Route: 065
     Dates: start: 202001
  4. XOLAIR [Suspect]
     Active Substance: OMALIZUMAB
     Route: 065
  5. INSULIN NOS [Concomitant]
     Active Substance: INSULIN NOS
     Indication: Diabetes mellitus
     Route: 065

REACTIONS (16)
  - Dyspnoea [Recovered/Resolved]
  - Asthmatic crisis [Recovered/Resolved]
  - Dyspnoea [Recovered/Resolved]
  - Mood altered [Unknown]
  - COVID-19 [Recovered/Resolved]
  - Asthma [Recovered/Resolved]
  - Asthma [Unknown]
  - Bronchospasm [Unknown]
  - Myalgia [Recovered/Resolved]
  - Headache [Recovered/Resolved]
  - Incorrect dose administered [Unknown]
  - Agitation [Unknown]
  - Aphasia [Unknown]
  - Gait disturbance [Unknown]
  - Incorrect dose administered [Unknown]
  - Amnesia [Unknown]

NARRATIVE: CASE EVENT DATE: 20191201
